FAERS Safety Report 16046178 (Version 1)
Quarter: 2019Q1

REPORT INFORMATION
  Report Type: Spontaneous
  Country: CN (occurrence: CN)
  Receive Date: 20190307
  Receipt Date: 20190307
  Transmission Date: 20190418
  Serious: Yes (Other)
  Sender: FDA-Public Use
  Company Number: CN-ROCHE-2264286

PATIENT
  Age: 72 Year
  Sex: Female

DRUGS (24)
  1. RITUXIMAB. [Suspect]
     Active Substance: RITUXIMAB
     Dosage: D1
     Route: 065
     Dates: start: 20170304
  2. RITUXIMAB. [Suspect]
     Active Substance: RITUXIMAB
     Dosage: D1
     Route: 065
     Dates: start: 20170401
  3. VINCRISTINE [Concomitant]
     Active Substance: VINCRISTINE
     Indication: DIFFUSE LARGE B-CELL LYMPHOMA STAGE II
     Dosage: D1
     Route: 065
     Dates: start: 20170107
  4. RITUXIMAB. [Suspect]
     Active Substance: RITUXIMAB
     Indication: DIFFUSE LARGE B-CELL LYMPHOMA STAGE II
     Dosage: D1
     Route: 065
     Dates: start: 20170207
  5. CYCLOPHOSPHAMIDE. [Concomitant]
     Active Substance: CYCLOPHOSPHAMIDE
     Indication: DIFFUSE LARGE B-CELL LYMPHOMA STAGE II
     Dosage: D1
     Route: 065
     Dates: start: 20170107
  6. CYCLOPHOSPHAMIDE. [Concomitant]
     Active Substance: CYCLOPHOSPHAMIDE
     Dosage: D2
     Route: 065
     Dates: start: 20170401
  7. CYCLOPHOSPHAMIDE. [Concomitant]
     Active Substance: CYCLOPHOSPHAMIDE
     Dosage: D2
     Route: 065
     Dates: start: 20170424, end: 20170429
  8. VINCRISTINE [Concomitant]
     Active Substance: VINCRISTINE
     Dosage: D2
     Route: 065
     Dates: start: 20170424, end: 20170429
  9. DOXORUBICIN [Concomitant]
     Active Substance: DOXORUBICIN
     Dosage: D1
     Route: 065
     Dates: start: 20170304
  10. VINCRISTINE [Concomitant]
     Active Substance: VINCRISTINE
     Dosage: D2
     Route: 065
     Dates: start: 20170207
  11. DOXORUBICIN [Concomitant]
     Active Substance: DOXORUBICIN
     Dosage: D1
     Route: 065
     Dates: start: 20170424, end: 20170429
  12. VINCRISTINE [Concomitant]
     Active Substance: VINCRISTINE
     Dosage: D2
     Route: 065
     Dates: start: 20170304
  13. DOXORUBICIN [Concomitant]
     Active Substance: DOXORUBICIN
     Indication: DIFFUSE LARGE B-CELL LYMPHOMA STAGE II
     Dosage: D1
     Route: 065
     Dates: start: 20170107
  14. DOXORUBICIN [Concomitant]
     Active Substance: DOXORUBICIN
     Dosage: D1
     Route: 065
     Dates: start: 20170207
  15. DEXAMETHASONE. [Concomitant]
     Active Substance: DEXAMETHASONE
     Dosage: D2-6
     Route: 065
     Dates: start: 20170401
  16. DEXAMETHASONE. [Concomitant]
     Active Substance: DEXAMETHASONE
     Dosage: D2-6
     Route: 065
     Dates: start: 20170424, end: 20170429
  17. DOXORUBICIN [Concomitant]
     Active Substance: DOXORUBICIN
     Dosage: D1
     Route: 065
     Dates: start: 20170401
  18. RITUXIMAB. [Suspect]
     Active Substance: RITUXIMAB
     Dosage: D1
     Route: 065
     Dates: start: 20170424, end: 20170429
  19. CYCLOPHOSPHAMIDE. [Concomitant]
     Active Substance: CYCLOPHOSPHAMIDE
     Dosage: D2
     Route: 065
     Dates: start: 20170207
  20. CYCLOPHOSPHAMIDE. [Concomitant]
     Active Substance: CYCLOPHOSPHAMIDE
     Dosage: D2
     Route: 065
     Dates: start: 20170304
  21. DEXAMETHASONE. [Concomitant]
     Active Substance: DEXAMETHASONE
     Indication: DIFFUSE LARGE B-CELL LYMPHOMA STAGE II
     Dosage: D1-5
     Route: 065
     Dates: start: 20170107
  22. DEXAMETHASONE. [Concomitant]
     Active Substance: DEXAMETHASONE
     Dosage: D2-6
     Route: 065
     Dates: start: 20170304
  23. DEXAMETHASONE. [Concomitant]
     Active Substance: DEXAMETHASONE
     Dosage: D2-6
     Route: 065
     Dates: start: 20170207
  24. VINCRISTINE [Concomitant]
     Active Substance: VINCRISTINE
     Dosage: D2
     Route: 065
     Dates: start: 20170401

REACTIONS (6)
  - Pyrexia [Unknown]
  - Bone marrow failure [Unknown]
  - Femur fracture [Unknown]
  - Chills [Unknown]
  - Pseudomembranous colitis [Recovering/Resolving]
  - Diarrhoea [Unknown]
